FAERS Safety Report 9008750 (Version 1)
Quarter: 2013Q1

REPORT INFORMATION
  Report Type: Report from Study
  Country: US (occurrence: US)
  Receive Date: 20130111
  Receipt Date: 20130111
  Transmission Date: 20140127
  Serious: Yes (Other)
  Sender: FDA-Public Use
  Company Number: US-JNJFOC-20130103829

PATIENT
  Sex: Female

DRUGS (1)
  1. REMICADE [Suspect]
     Indication: CROHN^S DISEASE
     Route: 042
     Dates: start: 2010

REACTIONS (16)
  - Abortion spontaneous [Unknown]
  - Exposure during pregnancy [Unknown]
  - Immune system disorder [Unknown]
  - Crohn^s disease [Unknown]
  - Systemic lupus erythematosus [Unknown]
  - Oropharyngeal pain [Unknown]
  - Nervousness [Unknown]
  - Abdominal pain [Unknown]
  - Lymph node pain [Unknown]
  - Myalgia [Unknown]
  - Musculoskeletal stiffness [Unknown]
  - Arthralgia [Unknown]
  - Fatigue [Unknown]
  - Rash pruritic [Unknown]
  - Sleep disorder [Unknown]
  - Feeling abnormal [Unknown]
